FAERS Safety Report 6183970-3 (Version None)
Quarter: 2009Q2

REPORT INFORMATION
  Report Type: 
  Country: None (occurrence: None)
  Receive Date: 20090506
  Receipt Date: 20090506
  Transmission Date: 20091009
  Serious: Yes (Death)
  Sender: FDA-Public Use
  Company Number: None

PATIENT
  Age: 57 Year
  Sex: Female
  Weight: 40.3701 kg

DRUGS (1)
  1. SUTENT [Suspect]
     Indication: OESOPHAGEAL CARCINOMA
     Dosage: 25MG QD; ORAL
     Route: 048
     Dates: start: 20081111, end: 20090424

REACTIONS (11)
  - ANAEMIA [None]
  - ANGIOPATHY [None]
  - ANOREXIA [None]
  - BLOOD PRESSURE SYSTOLIC DECREASED [None]
  - ELECTROMECHANICAL DISSOCIATION [None]
  - GASTROINTESTINAL HAEMORRHAGE [None]
  - GENERAL PHYSICAL HEALTH DETERIORATION [None]
  - HAEMORRHAGE [None]
  - HEART RATE INCREASED [None]
  - HYPOXIA [None]
  - SYNCOPE [None]
